FAERS Safety Report 6297247-9 (Version None)
Quarter: 2009Q3

REPORT INFORMATION
  Report Type: 
  Country: None (occurrence: None)
  Receive Date: 20090804
  Receipt Date: 20090804
  Transmission Date: 20100115
  Serious: Yes (Hospitalization, Other)
  Sender: FDA-Public Use
  Company Number: None

PATIENT

DRUGS (1)
  1. AMBIEN [Suspect]
     Indication: SLEEP DISORDER
     Dosage: 1 A DAY AT BEDTIME

REACTIONS (4)
  - AMNESIA [None]
  - CONTUSION [None]
  - PAIN [None]
  - RIB FRACTURE [None]
